FAERS Safety Report 15838041 (Version 2)
Quarter: 2019Q1

REPORT INFORMATION
  Report Type: Spontaneous
  Country: US (occurrence: US)
  Receive Date: 20190117
  Receipt Date: 20190225
  Transmission Date: 20190417
  Serious: Yes (Other)
  Sender: FDA-Public Use
  Company Number: US-JNJFOC-20190113332

PATIENT
  Age: 20 Year
  Sex: Female
  Weight: 77.11 kg

DRUGS (2)
  1. ORTHO NOVUM [Suspect]
     Active Substance: MESTRANOL\NORETHINDRONE
     Indication: CONTRACEPTION
     Route: 048
     Dates: end: 1989
  2. ORTHO NOVUM [Suspect]
     Active Substance: MESTRANOL\NORETHINDRONE
     Indication: CONTRACEPTION
     Route: 048

REACTIONS (4)
  - Premature delivery [Unknown]
  - Pregnancy on oral contraceptive [Recovered/Resolved]
  - Placental disorder [Unknown]
  - Exposure during pregnancy [Recovered/Resolved]

NARRATIVE: CASE EVENT DATE: 1989
